FAERS Safety Report 5664546-0 (Version None)
Quarter: 2008Q1

REPORT INFORMATION
  Report Type: 
  Country: None (occurrence: None)
  Receive Date: 20080311
  Receipt Date: 20080311
  Transmission Date: 20080703
  Serious: Yes (Other)
  Sender: FDA-Public Use
  Company Number: None

PATIENT
  Age: 61 Year
  Sex: Female
  Weight: 83.9154 kg

DRUGS (1)
  1. CLINDAMYCIN 150 MG UNKNOWN [Suspect]
     Indication: POSTOPERATIVE WOUND INFECTION
     Dosage: 150 MG 3 X DAILY
     Dates: start: 20080226, end: 20080310

REACTIONS (2)
  - TENDONITIS [None]
  - TRIGGER FINGER [None]
